FAERS Safety Report 5016647-8 (Version None)
Quarter: 2006Q2

REPORT INFORMATION
  Report Type: 
  Country: None (occurrence: None)
  Receive Date: 20060526
  Receipt Date: 20060512
  Transmission Date: 20061013
  Serious: Yes (Death)
  Sender: FDA-Public Use
  Company Number: 14055

PATIENT
  Age: 76 Year
  Sex: Male
  Weight: 69.8 kg

DRUGS (8)
  1. CARBOPLATIN [Suspect]
     Indication: SMALL CELL LUNG CANCER STAGE UNSPECIFIED
     Dosage: 670 FREQ IV
     Route: 042
     Dates: start: 20060125, end: 20060125
  2. ETOPOSIDE [Suspect]
     Indication: SMALL CELL LUNG CANCER STAGE UNSPECIFIED
     Dosage: 220 FREQ IV
     Route: 042
     Dates: start: 20060125, end: 20060127
  3. BISOPROLOL [Concomitant]
  4. OMEPRAZOLE [Concomitant]
  5. DEXAMETHASONE TAB [Concomitant]
  6. DOMPERIDONE [Concomitant]
  7. CIPROFLOXACIN [Concomitant]
  8. AMOXICILLIN + CLAVULANATE POTASSIUM [Concomitant]

REACTIONS (2)
  - CLOSTRIDIAL INFECTION [None]
  - NEUTROPENIC SEPSIS [None]
